FAERS Safety Report 17566793 (Version 1)
Quarter: 2020Q1

REPORT INFORMATION
  Report Type: Report from Study
  Country: None (occurrence: AU)
  Receive Date: 20200320
  Receipt Date: 20200320
  Transmission Date: 20200409
  Serious: Yes (Other)
  Sender: FDA-Public Use
  Company Number: AU-ABBVIE-20K-008-3323935-00

PATIENT
  Sex: Female

DRUGS (1)
  1. HUMIRA [Suspect]
     Active Substance: ADALIMUMAB
     Indication: HIDRADENITIS
     Route: 058

REACTIONS (10)
  - Insomnia [Unknown]
  - Nausea [Recovering/Resolving]
  - Axillary mass [Not Recovered/Not Resolved]
  - Haematochezia [Unknown]
  - Drug ineffective [Not Recovered/Not Resolved]
  - Feeling abnormal [Not Recovered/Not Resolved]
  - Skin mass [Not Recovered/Not Resolved]
  - Vomiting [Recovering/Resolving]
  - Spinal cord neoplasm [Unknown]
  - Breast mass [Not Recovered/Not Resolved]
